FAERS Safety Report 5932834-6 (Version None)
Quarter: 2008Q4

REPORT INFORMATION
  Report Type: 
  Country: None (occurrence: None)
  Receive Date: 20081028
  Receipt Date: 20080925
  Transmission Date: 20090506
  Serious: Yes (Other)
  Sender: FDA-Public Use
  Company Number: FR-AMGEN-UK290071

PATIENT
  Age: 75 Year
  Sex: Male

DRUGS (1)
  1. ROMIPLOSTIM [Suspect]
     Indication: THROMBOCYTOPENIA
     Dates: start: 20080601

REACTIONS (4)
  - ACCIDENTAL OVERDOSE [None]
  - PLATELET COUNT ABNORMAL [None]
  - SPONDYLITIS [None]
  - WRONG TECHNIQUE IN DRUG USAGE PROCESS [None]
